FAERS Safety Report 6900974-0 (Version None)
Quarter: 2010Q3

REPORT INFORMATION
  Report Type: 
  Country: None (occurrence: None)
  Receive Date: 20100803
  Receipt Date: 20100720
  Transmission Date: 20110219
  Serious: Yes (Life-Threatening)
  Sender: FDA-Public Use
  Company Number: B0381591A

PATIENT
  Sex: Female
  Weight: 61 kg

DRUGS (2)
  1. GW679769 [Suspect]
     Dosage: 150MG SINGLE DOSE
     Route: 048
     Dates: start: 20050425
  2. ONDANSETRON [Suspect]
     Dosage: 4MG SINGLE DOSE
     Route: 042
     Dates: start: 20050425

REACTIONS (1)
  - HYPERGLYCAEMIA [None]
